FAERS Safety Report 17692699 (Version 2)
Quarter: 2020Q2

REPORT INFORMATION
  Report Type: Spontaneous
  Country: JP (occurrence: JP)
  Receive Date: 20200422
  Receipt Date: 20200626
  Transmission Date: 20200714
  Serious: Yes (Hospitalization)
  Sender: FDA-Public Use
  Company Number: JP-TEVA-2020-JP-1227132

PATIENT
  Age: 79 Year
  Sex: Female
  Weight: 47 kg

DRUGS (12)
  1. AZILECT [Suspect]
     Active Substance: RASAGILINE MESYLATE
     Indication: PARKINSON^S DISEASE
     Dosage: 1 MILLIGRAM DAILY;
     Route: 048
     Dates: start: 20190606, end: 20190912
  2. VIVIANT [Concomitant]
     Active Substance: BAZEDOXIFENE
  3. ROZEREM [Concomitant]
     Active Substance: RAMELTEON
     Dates: start: 20180412
  4. NEXIUM [Concomitant]
     Active Substance: ESOMEPRAZOLE MAGNESIUM
     Dates: start: 20170131
  5. ARICEPT [Concomitant]
     Active Substance: DONEPEZIL HYDROCHLORIDE
     Dates: end: 20200202
  6. MAGMITT [Concomitant]
     Active Substance: MAGNESIUM OXIDE
     Dates: start: 20170214
  7. LEVODOPA [Concomitant]
     Active Substance: LEVODOPA
  8. LUNESTA [Concomitant]
     Active Substance: ESZOPICLONE
     Dates: start: 20181018
  9. OLMETEC [Concomitant]
     Active Substance: OLMESARTAN MEDOXOMIL
  10. NEODOPASTON [Concomitant]
     Active Substance: CARBIDOPA\LEVODOPA
     Dates: start: 20170216
  11. BETANIS [Concomitant]
     Active Substance: MIRABEGRON
     Dates: start: 20171012
  12. AZILECT [Suspect]
     Active Substance: RASAGILINE MESYLATE
     Dosage: 1 MILLIGRAM DAILY;
     Route: 048
     Dates: start: 20191003, end: 20200215

REACTIONS (5)
  - Hyperhidrosis [Recovered/Resolved]
  - Headache [Unknown]
  - Syncope [Unknown]
  - Labile blood pressure [Recovered/Resolved]
  - Orthostatic hypotension [Recovered/Resolved]

NARRATIVE: CASE EVENT DATE: 20190820
